FAERS Safety Report 5154318-8 (Version None)
Quarter: 2006Q4

REPORT INFORMATION
  Report Type: 
  Country: None (occurrence: None)
  Receive Date: 20061114
  Receipt Date: 20061031
  Transmission Date: 20070319
  Serious: Yes (Life-Threatening)
  Sender: FDA-Public Use
  Company Number: DE-2006-018955

PATIENT
  Age: 47 Year
  Sex: Female

DRUGS (6)
  1. MAGNEVIST [Suspect]
     Indication: NUCLEAR MAGNETIC RESONANCE IMAGING
     Dosage: 1 DOSE, INTRAVENOUS
     Route: 042
     Dates: start: 20060505, end: 20060505
  2. TRAMADOL HCL [Concomitant]
  3. NOVALGIN (METAMIZOLE SODIUM MONOHYDRATE) [Concomitant]
  4. MUSARIL (TETRAZEPAM) [Concomitant]
  5. IBUPROFEN [Concomitant]
  6. PANTOPRAZOLE SODIUM [Concomitant]

REACTIONS (4)
  - ANAPHYLACTIC SHOCK [None]
  - CARDIOVASCULAR INSUFFICIENCY [None]
  - DRUG HYPERSENSITIVITY [None]
  - RESPIRATORY ARREST [None]
